FAERS Safety Report 13573430 (Version 2)
Quarter: 2017Q2

REPORT INFORMATION
  Report Type: Spontaneous
  Country: JP (occurrence: JP)
  Receive Date: 20170523
  Receipt Date: 20170523
  Transmission Date: 20170830
  Serious: Yes (Other)
  Sender: FDA-Public Use
  Company Number: JP-JNJFOC-20170515683

PATIENT
  Age: 81 Year
  Sex: Male

DRUGS (4)
  1. TENELIA [Suspect]
     Active Substance: TENELIGLIPTIN
     Indication: DIABETES MELLITUS
     Route: 048
     Dates: start: 20170228, end: 20170328
  2. EQUA [Concomitant]
     Active Substance: VILDAGLIPTIN
     Route: 065
     Dates: end: 20170228
  3. CANAGLU [Suspect]
     Active Substance: CANAGLIFLOZIN
     Indication: DIABETES MELLITUS
     Route: 048
     Dates: start: 20170228, end: 20170328
  4. EQUA [Concomitant]
     Active Substance: VILDAGLIPTIN
     Route: 065
     Dates: start: 20170328

REACTIONS (1)
  - Urinary retention [Recovered/Resolved]

NARRATIVE: CASE EVENT DATE: 20170307
